FAERS Safety Report 6441334-9 (Version None)
Quarter: 2009Q4

REPORT INFORMATION
  Report Type: 
  Country: None (occurrence: None)
  Receive Date: 20091109
  Receipt Date: 20091029
  Transmission Date: 20100525
  Serious: Yes (Hospitalization)
  Sender: FDA-Public Use
  Company Number: 2280705-2009-00017

PATIENT
  Sex: Female

DRUGS (1)
  1. MENTADENT SPECIALTY WHITENING TOOTHPASTE + POLISHING KIT (ITEM CONTAIN [Suspect]
     Indication: DENTAL DISORDER PROPHYLAXIS
     Dosage: USED TO BRUSH TEETH (TOOTHPOLISH)

REACTIONS (2)
  - ANGIOEDEMA [None]
  - REACTION TO DRUG EXCIPIENTS [None]
